FAERS Safety Report 17249304 (Version 7)
Quarter: 2020Q3

REPORT INFORMATION
  Report Type: Spontaneous
  Country: US (occurrence: US)
  Receive Date: 20200108
  Receipt Date: 20200825
  Transmission Date: 20201102
  Serious: Yes (Hospitalization)
  Sender: FDA-Public Use
  Company Number: US-ACTELION-A-NJ2020-200235

PATIENT
  Age: 56 Year
  Sex: Male
  Weight: 75.74 kg

DRUGS (4)
  1. OPSUMIT [Suspect]
     Active Substance: MACITENTAN
     Indication: PULMONARY ARTERIAL HYPERTENSION
     Dosage: 10 MG, QD
     Route: 048
  2. UPTRAVI [Concomitant]
     Active Substance: SELEXIPAG
     Indication: PULMONARY ARTERIAL HYPERTENSION
  3. ADEMPAS [Concomitant]
     Active Substance: RIOCIGUAT
  4. ORENITRAM [Concomitant]
     Active Substance: TREPROSTINIL

REACTIONS (10)
  - Dyspnoea [Not Recovered/Not Resolved]
  - Cardiac disorder [Unknown]
  - Chest pain [Unknown]
  - Swelling [Unknown]
  - Oxygen saturation decreased [Not Recovered/Not Resolved]
  - Adverse event [Unknown]
  - Dry mouth [Not Recovered/Not Resolved]
  - Pulmonary oedema [Unknown]
  - Pleural effusion [Unknown]
  - Fatigue [Not Recovered/Not Resolved]

NARRATIVE: CASE EVENT DATE: 20191231
